FAERS Safety Report 8559829-0 (Version None)
Quarter: 2012Q3

REPORT INFORMATION
  Report Type: 
  Country: None (occurrence: None)
  Receive Date: 20120802
  Receipt Date: 20120730
  Transmission Date: 20120928
  Serious: No
  Sender: FDA-Public Use
  Company Number: US-PFIZER INC-2012185630

PATIENT
  Sex: Female
  Weight: 64.853 kg

DRUGS (7)
  1. SUTENT [Suspect]
     Indication: RENAL CELL CARCINOMA
     Dosage: 50 MG, UNK
     Dates: start: 20120703, end: 20120720
  2. SIMVASTATIN [Concomitant]
  3. ACETYLSALICYLIC ACID [Concomitant]
     Dosage: 81 MG, UNK
  4. LEXOTAN [Concomitant]
     Dosage: UNK
  5. HYDROCODONE [Concomitant]
  6. LEVOTHYROXINE [Concomitant]
  7. ATENOLOL [Concomitant]
     Dosage: UNK

REACTIONS (2)
  - LIVER DISORDER [None]
  - WHITE BLOOD CELL DISORDER [None]
